FAERS Safety Report 9853279 (Version 1)
Quarter: 2014Q1

REPORT INFORMATION
  Report Type: Spontaneous
  Country: GB (occurrence: None)
  Receive Date: 20140127
  Receipt Date: 20140127
  Transmission Date: 20141002
  Serious: Yes (Hospitalization, Other)
  Sender: FDA-Public Use
  Company Number: KAD201401-000086

PATIENT
  Age: 51 Year
  Sex: Male

DRUGS (7)
  1. RIBAVIRIN (RIBAVIRIN) [Suspect]
     Indication: HEPATITIS C
     Dosage: 600 MG TTWICE DAILY
     Dates: start: 20130706
  2. INCIVO (TELAPREVIR) [Suspect]
     Indication: HEPATITIS C
     Dosage: TABLET, 750 MG THRICE DAILY
  3. PEGINTERFERON ALFA-2A (PEGINTERFERON ALFA-2A) [Suspect]
     Indication: HEPATITIS C
     Dosage: 180 UG ONCE WEEKLY
     Dates: start: 20130706
  4. RITONAVIR (RITONAVIR) [Concomitant]
  5. ATAZANAVIR (ATAZANAVIR) [Concomitant]
  6. LAMIVUDINE [Concomitant]
  7. L-THYROXINE (LEVOTHYROXINE) [Concomitant]

REACTIONS (4)
  - Anaemia [None]
  - Off label use [None]
  - Renal impairment [None]
  - Thrombocytopenia [None]
